FAERS Safety Report 20938437 (Version 1)
Quarter: 2022Q2

REPORT INFORMATION
  Report Type: Spontaneous
  Country: US (occurrence: US)
  Receive Date: 20220609
  Receipt Date: 20220609
  Transmission Date: 20220721
  Serious: No
  Sender: FDA-Public Use
  Company Number: US-PFIZER INC-202101524514

PATIENT
  Age: 76 Year
  Sex: Female

DRUGS (3)
  1. COLESTIPOL HYDROCHLORIDE [Suspect]
     Active Substance: COLESTIPOL HYDROCHLORIDE
     Indication: Gastrointestinal disorder
     Dosage: UNK
  2. COLESTIPOL HYDROCHLORIDE [Suspect]
     Active Substance: COLESTIPOL HYDROCHLORIDE
     Indication: Crohn^s disease
  3. COLESTIPOL HYDROCHLORIDE [Suspect]
     Active Substance: COLESTIPOL HYDROCHLORIDE
     Indication: Irritable bowel syndrome

REACTIONS (4)
  - Dysphagia [Unknown]
  - Retching [Unknown]
  - Off label use [Unknown]
  - Drug effective for unapproved indication [Unknown]
